FAERS Safety Report 6544082-X (Version None)
Quarter: 2010Q1

REPORT INFORMATION
  Report Type: 
  Country: None (occurrence: None)
  Receive Date: 20100119
  Receipt Date: 20100119
  Transmission Date: 20100710
  Serious: No
  Sender: FDA-Public Use
  Company Number: None

PATIENT
  Sex: Female
  Weight: 49.8957 kg

DRUGS (1)
  1. AVELOX [Suspect]
     Indication: ACUTE SINUSITIS
     Dosage: 1 TABLET BY MOUTH 1 PER DAY PO
     Route: 048
     Dates: start: 20100107, end: 20100109

REACTIONS (5)
  - DIARRHOEA [None]
  - HALLUCINATION [None]
  - JAW DISORDER [None]
  - NIGHTMARE [None]
  - VOMITING [None]
